FAERS Safety Report 18479688 (Version 1)
Quarter: 2020Q4

REPORT INFORMATION
  Report Type: Spontaneous
  Country: US (occurrence: US)
  Receive Date: 20201107
  Receipt Date: 20201107
  Transmission Date: 20210114
  Serious: Yes (Other)
  Sender: FDA-Public Use
  Company Number: None

PATIENT
  Age: 39 Year
  Sex: Female
  Weight: 56.25 kg

DRUGS (7)
  1. VENLAFAXINE HCL TABS 75MG GENERIC FOR EFFEXOR [Suspect]
     Active Substance: VENLAFAXINE HYDROCHLORIDE
     Indication: HOT FLUSH
     Dosage: ?          QUANTITY:1 TABLET(S);?
     Route: 048
     Dates: start: 20201009, end: 20201009
  2. EXEMESTANE. [Concomitant]
     Active Substance: EXEMESTANE
  3. STELARA [Concomitant]
     Active Substance: USTEKINUMAB
  4. VITAMIN D [Concomitant]
     Active Substance: VITAMIN D NOS
  5. CALCIUM [Concomitant]
     Active Substance: CALCIUM
  6. IRON [Concomitant]
     Active Substance: IRON
  7. BIOTIN [Concomitant]
     Active Substance: BIOTIN

REACTIONS (3)
  - Vomiting [None]
  - Feeling hot [None]
  - Muscle twitching [None]

NARRATIVE: CASE EVENT DATE: 20201010
